FAERS Safety Report 7395687-8 (Version None)
Quarter: 2011Q2

REPORT INFORMATION
  Report Type: 
  Country: None (occurrence: None)
  Receive Date: 20110405
  Receipt Date: 20101230
  Transmission Date: 20111010
  Serious: No
  Sender: FDA-Public Use
  Company Number: US-BAYER-2011-027243

PATIENT
  Sex: Female
  Weight: 55 kg

DRUGS (3)
  1. ANTIHYPERTENSIVES [Concomitant]
  2. ACETYLSALICYLIC ACID SRT [Concomitant]
  3. ALEVE (CAPLET) [Suspect]
     Indication: PAIN
     Dosage: UNK
     Dates: start: 20101229

REACTIONS (1)
  - PAIN IN EXTREMITY [None]
